FAERS Safety Report 9817252 (Version 2)
Quarter: 2014Q1

REPORT INFORMATION
  Report Type: Spontaneous
  Country: MX (occurrence: MX)
  Receive Date: 20140115
  Receipt Date: 20140120
  Transmission Date: 20141002
  Serious: Yes (Other)
  Sender: FDA-Public Use
  Company Number: MX-009507513-1401MEX004510

PATIENT
  Age: 27 Year
  Sex: Female

DRUGS (1)
  1. IMPLANON [Suspect]
     Indication: CONTRACEPTION
     Dosage: 3 YRS, 60-70 MCG/D WK 5-6, 35-45 MCG/D 1ST YR END, 30-40 MCG/D 2ND YR END 25-30 MCG/D 3RD YR END
     Route: 059
     Dates: start: 20131202

REACTIONS (3)
  - Vaginal haemorrhage [Unknown]
  - Uterine dilation and curettage [Unknown]
  - Unintended pregnancy [Recovered/Resolved]
